FAERS Safety Report 18738800 (Version 2)
Quarter: 2021Q1

REPORT INFORMATION
  Report Type: Report from Study
  Country: US (occurrence: US)
  Receive Date: 20210114
  Receipt Date: 20210223
  Transmission Date: 20210419
  Serious: Yes (Disabling, Other)
  Sender: FDA-Public Use
  Company Number: US-REGENERON PHARMACEUTICALS, INC.-2021-11293

PATIENT

DRUGS (1)
  1. EYLEA [Suspect]
     Active Substance: AFLIBERCEPT
     Indication: MACULAR DEGENERATION
     Dosage: 2 MG, Q4W
     Route: 031
     Dates: start: 20170105

REACTIONS (3)
  - Endophthalmitis [Recovered/Resolved]
  - Blindness unilateral [Recovering/Resolving]
  - Vitrectomy [Unknown]

NARRATIVE: CASE EVENT DATE: 202003
